FAERS Safety Report 17048097 (Version 1)
Quarter: 2019Q4

REPORT INFORMATION
  Report Type: Spontaneous
  Country: US (occurrence: US)
  Receive Date: 20191018
  Receipt Date: 20191018
  Transmission Date: 20200122
  Serious: Yes (Death)
  Sender: FDA-Public Use
  Company Number: None

PATIENT
  Age: 14 Month
  Sex: Male
  Weight: 118 kg

DRUGS (4)
  1. DOXORUBICIN HYDROCHLORIDE. [Suspect]
     Active Substance: DOXORUBICIN HYDROCHLORIDE
     Dates: end: 20190829
  2. VINCRISTINE SULFATE. [Suspect]
     Active Substance: VINCRISTINE SULFATE
     Dates: end: 20190904
  3. CISPLATIN. [Suspect]
     Active Substance: CISPLATIN
     Dates: end: 20190828
  4. 5-FLUOROURACIL (5-FU) (19893) [Suspect]
     Active Substance: FLUOROURACIL
     Dates: end: 20190828

REACTIONS (10)
  - Mass [None]
  - Respiratory failure [None]
  - Acute kidney injury [None]
  - Haemorrhage [None]
  - Pyrexia [None]
  - Abdominal distension [None]
  - Tachycardia [None]
  - Pleural effusion [None]
  - Hypotension [None]
  - Urine output decreased [None]

NARRATIVE: CASE EVENT DATE: 20180830
